FAERS Safety Report 13990625 (Version 1)
Quarter: 2017Q3

REPORT INFORMATION
  Report Type: Spontaneous
  Country: EC (occurrence: EC)
  Receive Date: 20170920
  Receipt Date: 20170920
  Transmission Date: 20171128
  Serious: Yes (Other)
  Sender: FDA-Public Use
  Company Number: EC-PFIZER INC-2017402802

PATIENT
  Age: 41 Year
  Sex: Male

DRUGS (3)
  1. ETOPOSIDE. [Suspect]
     Active Substance: ETOPOSIDE
     Indication: CHEMOTHERAPY
     Dosage: UNK, CYCLIC
  2. CARBOPLATIN. [Suspect]
     Active Substance: CARBOPLATIN
     Indication: PLASMA CELL LEUKAEMIA
     Dosage: UNK, CYCLIC
  3. IFOSFAMIDE. [Concomitant]
     Active Substance: IFOSFAMIDE
     Indication: PLASMA CELL LEUKAEMIA
     Dosage: UNK, CYCLIC

REACTIONS (6)
  - Tumour lysis syndrome [Unknown]
  - Bone marrow failure [Recovered/Resolved]
  - Epistaxis [Unknown]
  - Renal failure [Unknown]
  - Clostridium difficile colitis [Unknown]
  - Pneumonia [Unknown]
